FAERS Safety Report 5879994-3 (Version None)
Quarter: 2008Q3

REPORT INFORMATION
  Report Type: 
  Country: None (occurrence: None)
  Receive Date: 20080912
  Receipt Date: 20080617
  Transmission Date: 20090109
  Serious: Yes (Other)
  Sender: FDA-Public Use
  Company Number: GB-PFIZER INC-2008040861

PATIENT
  Sex: Female
  Weight: 92 kg

DRUGS (5)
  1. CHANTIX [Suspect]
     Indication: SMOKING CESSATION THERAPY
     Route: 048
     Dates: start: 20071101, end: 20071201
  2. TETANUS VACCINE [Concomitant]
     Route: 030
     Dates: start: 20071120, end: 20071120
  3. DIPHTHERIA VACCINE [Concomitant]
     Route: 030
     Dates: start: 20071120, end: 20071120
  4. POLIO-VACCINE [Concomitant]
     Route: 030
     Dates: start: 20071120, end: 20071120
  5. CLIMAGEST [Concomitant]
     Route: 048
     Dates: start: 20061030

REACTIONS (11)
  - BLINDNESS UNILATERAL [None]
  - DISSOCIATION [None]
  - DIZZINESS [None]
  - FEELING ABNORMAL [None]
  - GAIT DISTURBANCE [None]
  - HEADACHE [None]
  - MALAISE [None]
  - PAIN IN EXTREMITY [None]
  - PARAESTHESIA [None]
  - SENSATION OF HEAVINESS [None]
  - VISION BLURRED [None]
